FAERS Safety Report 18963979 (Version 1)
Quarter: 2021Q1

REPORT INFORMATION
  Report Type: Spontaneous
  Country: JP (occurrence: JP)
  Receive Date: 20210303
  Receipt Date: 20210303
  Transmission Date: 20210420
  Serious: Yes (Other)
  Sender: FDA-Public Use
  Company Number: JP-PFIZER INC-2021181499

PATIENT
  Age: 64 Year
  Sex: Male
  Weight: 80 kg

DRUGS (23)
  1. NEO MINOPHAGEN C [GLYCYRRHIZIC ACID, AMMONIUM SALT] [Suspect]
     Active Substance: AMMONIUM GLYCYRRHIZATE
     Dosage: UNK
  2. ACYCLOVIR [ACICLOVIR] [Suspect]
     Active Substance: ACYCLOVIR
     Dosage: UNK
  3. URSO [Suspect]
     Active Substance: URSODIOL
     Dosage: UNK
  4. OMEPRAZOLE. [Suspect]
     Active Substance: OMEPRAZOLE
     Dosage: UNK
  5. AMMONIUM GLYCYRRHIZINATE [Suspect]
     Active Substance: AMMONIUM GLYCYRRHIZATE
     Dosage: UNK
  6. SOLU?MEDROL [Suspect]
     Active Substance: METHYLPREDNISOLONE SODIUM SUCCINATE
     Dosage: UNK
  7. FOSCAVIR [Suspect]
     Active Substance: FOSCARNET SODIUM
     Dosage: UNK
  8. TRANSAMIN [Suspect]
     Active Substance: TRANEXAMIC ACID
     Dosage: UNK
  9. MICAFUNGIN SODIUM [Suspect]
     Active Substance: MICAFUNGIN SODIUM
     Dosage: UNK
  10. THROMBOMODULIN ALFA [Suspect]
     Active Substance: THROMBOMODULIN ALFA
     Dosage: UNK
  11. CUBICIN [Suspect]
     Active Substance: DAPTOMYCIN
     Dosage: UNK
  12. PROGRAF [Suspect]
     Active Substance: TACROLIMUS
     Dosage: UNK
  13. URSODIOL. [Suspect]
     Active Substance: URSODIOL
     Dosage: UNK
  14. VFEND [Suspect]
     Active Substance: VORICONAZOLE
     Dosage: UNK
  15. SOLU?CORTEF [Suspect]
     Active Substance: HYDROCORTISONE SODIUM SUCCINATE
     Dosage: UNK
  16. BARACLUDE [Suspect]
     Active Substance: ENTECAVIR
     Dosage: UNK
  17. DIGOXIN. [Suspect]
     Active Substance: DIGOXIN
     Dosage: UNK
  18. MEROPENEM. [Suspect]
     Active Substance: MEROPENEM
     Dosage: UNK
  19. LASIX [Suspect]
     Active Substance: FUROSEMIDE
     Dosage: UNK
  20. CARPERITIDE [Suspect]
     Active Substance: CARPERITIDE
     Dosage: UNK
  21. JANUVIA [Suspect]
     Active Substance: SITAGLIPTIN PHOSPHATE
     Dosage: UNK
  22. AMBISOME [Suspect]
     Active Substance: AMPHOTERICIN B
     Dosage: UNK
  23. CELLCEPT [Suspect]
     Active Substance: MYCOPHENOLATE MOFETIL\MYCOPHENOLATE MOFETIL HYDROCHLORIDE
     Dosage: UNK

REACTIONS (8)
  - Drug ineffective [Unknown]
  - Blood alkaline phosphatase increased [Unknown]
  - Gamma-glutamyltransferase increased [Unknown]
  - Cardiac failure acute [Unknown]
  - Blood creatinine increased [Unknown]
  - Blood urea increased [Unknown]
  - Weight increased [Unknown]
  - Thrombotic microangiopathy [Unknown]

NARRATIVE: CASE EVENT DATE: 20130411
